FAERS Safety Report 19840225 (Version 7)
Quarter: 2022Q2

REPORT INFORMATION
  Report Type: Report from Study
  Country: US (occurrence: US)
  Receive Date: 20210915
  Receipt Date: 20220611
  Transmission Date: 20220721
  Serious: Yes (Hospitalization, Other)
  Sender: FDA-Public Use
  Company Number: NVSC2021US209212

PATIENT
  Sex: Male

DRUGS (4)
  1. ENTRESTO [Suspect]
     Active Substance: SACUBITRIL\VALSARTAN
     Indication: Product used for unknown indication
     Dosage: UNK, BID
     Route: 048
  2. ENTRESTO [Suspect]
     Active Substance: SACUBITRIL\VALSARTAN
     Dosage: 1 DOSAGE FORM, QD (24/26 MG)
     Route: 065
  3. ROSUVASTATIN CALCIUM [Suspect]
     Active Substance: ROSUVASTATIN CALCIUM
     Indication: Product used for unknown indication
     Dosage: 40 MG
     Route: 065
  4. ROSUVASTATIN CALCIUM [Suspect]
     Active Substance: ROSUVASTATIN CALCIUM
     Dosage: 20 MG
     Route: 065

REACTIONS (14)
  - Haemorrhage [Unknown]
  - Chest pain [Not Recovered/Not Resolved]
  - Carotid artery occlusion [Recovering/Resolving]
  - Cerebrovascular accident [Unknown]
  - Scoliosis [Unknown]
  - Intervertebral disc protrusion [Unknown]
  - Pollakiuria [Unknown]
  - Back pain [Unknown]
  - Hypotension [Not Recovered/Not Resolved]
  - Fatigue [Unknown]
  - Dizziness [Unknown]
  - Blood cholesterol increased [Unknown]
  - Cardiovascular disorder [Unknown]
  - Off label use [Unknown]
